FAERS Safety Report 5622600-3 (Version None)
Quarter: 2008Q1

REPORT INFORMATION
  Report Type: 
  Country: None (occurrence: None)
  Receive Date: 20080211
  Receipt Date: 20080211
  Transmission Date: 20080703
  Serious: Yes (Hospitalization)
  Sender: FDA-Public Use
  Company Number: None

PATIENT
  Age: 3 Month
  Sex: Male

DRUGS (2)
  1. SYNAGIS [Suspect]
     Dosage: IM / L THIGH
     Route: 030
     Dates: start: 20080117
  2. SYNAGIS [Suspect]
     Dosage: IM
     Route: 030
     Dates: start: 20071211

REACTIONS (2)
  - CONVULSION [None]
  - MUSCLE SPASMS [None]
